FAERS Safety Report 6544051-X (Version None)
Quarter: 2010Q1

REPORT INFORMATION
  Report Type: 
  Country: None (occurrence: None)
  Receive Date: 20100119
  Receipt Date: 20100119
  Transmission Date: 20100710
  Serious: Yes (Other)
  Sender: FDA-Public Use
  Company Number: None

PATIENT
  Age: 42 Year
  Sex: Female
  Weight: 54.4316 kg

DRUGS (2)
  1. ZICAM NASAL SPRAY NOT SURE NOT SURE [Suspect]
     Indication: HYPERSENSITIVITY
     Dosage: 1 SPRAY EACH NOSTRIL Q 4 HOURS /2 WEEKS NASAL
     Route: 045
     Dates: start: 20100102, end: 20100114
  2. ZICAM NASAL SPRAY NOT SURE NOT SURE [Suspect]
     Indication: NASOPHARYNGITIS
     Dosage: 1 SPRAY EACH NOSTRIL Q 4 HOURS /2 WEEKS NASAL
     Route: 045
     Dates: start: 20100102, end: 20100114

REACTIONS (3)
  - HYPOGEUSIA [None]
  - HYPOSMIA [None]
  - NASAL DISCOMFORT [None]
